FAERS Safety Report 5177401-X (Version None)
Quarter: 2006Q4

REPORT INFORMATION
  Report Type: 
  Country: None (occurrence: None)
  Receive Date: 20061207
  Receipt Date: 20061124
  Transmission Date: 20070319
  Serious: Yes (Other)
  Sender: FDA-Public Use
  Company Number: 2006143573

PATIENT
  Age: 62 Year
  Sex: Female

DRUGS (3)
  1. XALATAN [Suspect]
     Indication: INTRAOCULAR PRESSURE INCREASED
     Dosage: 3 MCG (3 MCG, 1 IN 1 D), OPHTHALMIC
     Route: 047
     Dates: start: 20041101, end: 20061101
  2. VITAMINS WITH MINERALS (VITAMINS WITH MINERALS) [Concomitant]
  3. CENTRUM (MINERALS NOS, VITAMINS NOS) [Concomitant]

REACTIONS (4)
  - CONDITION AGGRAVATED [None]
  - INTRAOCULAR PRESSURE INCREASED [None]
  - PAIN [None]
  - VARICOSE VEIN [None]
